FAERS Safety Report 4352667-4 (Version None)
Quarter: 2004Q2

REPORT INFORMATION
  Report Type: 
  Country: None (occurrence: None)
  Receive Date: 20040504
  Receipt Date: 20040310
  Transmission Date: 20050107
  Serious: Yes (Death, Life-Threatening)
  Sender: FDA-Public Use
  Company Number: JP-BRISTOL-MYERS SQUIBB COMPANY-12530440

PATIENT
  Age: 60 Year
  Sex: Female

DRUGS (5)
  1. TAXOL [Suspect]
     Indication: BREAST CANCER
     Dosage: THERAPY DATES: 27-JAN-2004 TO 24-FEB-2004
     Route: 042
     Dates: start: 20040224, end: 20040224
  2. HERCEPTIN [Suspect]
     Indication: BREAST CANCER
     Dosage: THERAPY DATES: 16-FEB TO 24-FEB-2004
     Route: 042
     Dates: start: 20040224, end: 20040224
  3. MEDROXYPROGESTERONE ACETATE [Concomitant]
     Route: 048
     Dates: start: 20030919, end: 20040224
  4. TAMOXIFEN CITRATE [Concomitant]
     Route: 048
     Dates: start: 20030919, end: 20040224
  5. ASPIRIN [Concomitant]
     Route: 048
     Dates: start: 20030919, end: 20040224

REACTIONS (4)
  - HAEMATURIA [None]
  - MULTI-ORGAN FAILURE [None]
  - RENAL FAILURE ACUTE [None]
  - WHITE BLOOD CELL COUNT DECREASED [None]
